FAERS Safety Report 12346247 (Version 1)
Quarter: 2016Q2

REPORT INFORMATION
  Report Type: Spontaneous
  Country: US (occurrence: None)
  Receive Date: 20160506
  Receipt Date: 20160506
  Transmission Date: 20160815
  Serious: Yes (Hospitalization, Disabling, Other)
  Sender: FDA-Public Use
  Company Number: None

PATIENT
  Age: 15 Year
  Sex: Male
  Weight: 72.58 kg

DRUGS (13)
  1. BENTYL [Concomitant]
     Active Substance: DICYCLOMINE HYDROCHLORIDE
  2. AQUA-DEK VITAMINS [Concomitant]
  3. PREDNISONE. [Concomitant]
     Active Substance: PREDNISONE
  4. EPIPEN [Concomitant]
     Active Substance: EPINEPHRINE
  5. IBUPROFEN. [Concomitant]
     Active Substance: IBUPROFEN
  6. ALBUTEROL. [Concomitant]
     Active Substance: ALBUTEROL
  7. NEXIUM [Concomitant]
     Active Substance: ESOMEPRAZOLE MAGNESIUM
  8. BUDESONIDE. [Concomitant]
     Active Substance: BUDESONIDE
  9. IRON SUPPLEMENTS [Concomitant]
     Active Substance: IRON
  10. XOLAIR [Suspect]
     Active Substance: OMALIZUMAB
     Indication: NASOPHARYNGITIS
     Route: 030
     Dates: start: 20150318, end: 20150318
  11. PULMACORT (NEBULIZER) [Concomitant]
  12. HYCOSCYMINE [Concomitant]
  13. XOLAIR [Suspect]
     Active Substance: OMALIZUMAB
     Indication: URTICARIA
     Route: 030
     Dates: start: 20150318, end: 20150318

REACTIONS (4)
  - Drug ineffective [None]
  - Product formulation issue [None]
  - Eosinophilia [None]
  - Gastroenteritis [None]

NARRATIVE: CASE EVENT DATE: 20150318
